FAERS Safety Report 17842794 (Version 1)
Quarter: 2020Q2

REPORT INFORMATION
  Report Type: Spontaneous
  Country: TR (occurrence: TR)
  Receive Date: 20200530
  Receipt Date: 20200530
  Transmission Date: 20200714
  Serious: Yes (Other)
  Sender: FDA-Public Use
  Company Number: NVSC2020TR147374

PATIENT

DRUGS (2)
  1. VEXPERDA [Suspect]
     Active Substance: DEFERASIROX
     Indication: LEUKAEMIA
     Dosage: UNK
     Route: 065
  2. VEXPERDA [Suspect]
     Active Substance: DEFERASIROX
     Dosage: UNK
     Route: 065

REACTIONS (3)
  - Liver disorder [Unknown]
  - Proteinuria [Unknown]
  - Nephrotic syndrome [Unknown]
